FAERS Safety Report 11398898 (Version 2)
Quarter: 2015Q3

REPORT INFORMATION
  Report Type: Spontaneous
  Country: US (occurrence: US)
  Receive Date: 20150820
  Receipt Date: 20150821
  Transmission Date: 20151125
  Serious: Yes (Death)
  Sender: FDA-Public Use
  Company Number: US-GUERBET LLC-1041235

PATIENT
  Age: 61 Year
  Sex: Female
  Weight: 99.6 kg

DRUGS (6)
  1. LEVETIRACETAM. [Concomitant]
     Active Substance: LEVETIRACETAM
     Route: 048
  2. ANASTROZOLE. [Concomitant]
     Active Substance: ANASTROZOLE
     Route: 048
  3. METOPROLOL [Concomitant]
     Active Substance: METOPROLOL
     Route: 048
  4. MEMANTINE. [Concomitant]
     Active Substance: MEMANTINE
     Route: 048
     Dates: start: 20141015
  5. DOTAREM [Suspect]
     Active Substance: GADOTERATE MEGLUMINE
     Indication: NUCLEAR MAGNETIC RESONANCE IMAGING BRAIN
     Route: 042
     Dates: start: 20150119, end: 20150119
  6. ALPRAZOLAM. [Concomitant]
     Active Substance: ALPRAZOLAM
     Route: 048
     Dates: start: 20140730

REACTIONS (2)
  - Anaphylactic reaction [Fatal]
  - Cardiac arrest [Fatal]

NARRATIVE: CASE EVENT DATE: 20150119
